FAERS Safety Report 9849975 (Version 1)
Quarter: 2014Q1

REPORT INFORMATION
  Report Type: Spontaneous
  Country: IT (occurrence: IT)
  Receive Date: 20140128
  Receipt Date: 20140128
  Transmission Date: 20141002
  Serious: Yes (Hospitalization)
  Sender: FDA-Public Use
  Company Number: IT-WATSON-2014-00747

PATIENT
  Age: 80 Year
  Sex: Male

DRUGS (10)
  1. RAMIPRIL ACTAVIS [Suspect]
     Indication: HYPERTENSION
     Dosage: 5 MG/DIE, QD
     Route: 048
     Dates: start: 20131001, end: 20140107
  2. ALDACTONE /00006201/ [Suspect]
     Indication: HYPERTENSION
     Dosage: 1 POSOLOGICAL UNIT, ON ALTERNATE DAYS
     Route: 048
     Dates: start: 20131001, end: 20140107
  3. EUTIROX [Concomitant]
  4. ALIFLUS [Concomitant]
  5. COUMADIN                           /00014802/ [Concomitant]
  6. TORVAST [Concomitant]
  7. BISOPROLOL FUMARATE [Concomitant]
  8. FUROSEMIDE [Concomitant]
  9. AMIDARONE [Concomitant]
  10. ALLOPURINOL [Concomitant]

REACTIONS (1)
  - Hyperkalaemia [Recovered/Resolved]
